FAERS Safety Report 7709154-2 (Version None)
Quarter: 2011Q3

REPORT INFORMATION
  Report Type: 
  Country: None (occurrence: None)
  Receive Date: 20110825
  Receipt Date: 20110817
  Transmission Date: 20111222
  Serious: Yes (Other)
  Sender: FDA-Public Use
  Company Number: PHFR2011GB04658

PATIENT
  Sex: Male

DRUGS (1)
  1. CLOZAPINE [Suspect]
     Route: 048
     Dates: start: 20110720

REACTIONS (7)
  - DIARRHOEA [None]
  - EOSINOPHIL COUNT INCREASED [None]
  - HEADACHE [None]
  - HYPERPYREXIA [None]
  - FOOD POISONING [None]
  - VOMITING [None]
  - HEART RATE INCREASED [None]
